FAERS Safety Report 9681885 (Version 1)
Quarter: 2013Q4

REPORT INFORMATION
  Report Type: Spontaneous
  Country: GB (occurrence: GB)
  Receive Date: 20131111
  Receipt Date: 20131111
  Transmission Date: 20140711
  Serious: Yes (Other)
  Sender: FDA-Public Use
  Company Number: GB-TEVA-443537ISR

PATIENT
  Age: 67 Year
  Sex: Male
  Weight: 65.77 kg

DRUGS (2)
  1. TRAZODONE [Suspect]
     Indication: DEPRESSION
     Route: 048
  2. AVAMYS [Concomitant]

REACTIONS (2)
  - Breath odour [Not Recovered/Not Resolved]
  - Dizziness [Recovered/Resolved]
